FAERS Safety Report 9798700 (Version 1)
Quarter: 2014Q1

REPORT INFORMATION
  Report Type: Spontaneous
  Country: US (occurrence: US)
  Receive Date: 20140106
  Receipt Date: 20140106
  Transmission Date: 20141002
  Serious: No
  Sender: FDA-Public Use
  Company Number: US-GILEAD-2010-0029857

PATIENT
  Sex: Female
  Weight: 77.11 kg

DRUGS (12)
  1. LETAIRIS [Suspect]
     Indication: PULMONARY ARTERIAL HYPERTENSION
     Route: 048
     Dates: start: 20071003
  2. TRACLEER [Concomitant]
     Indication: PULMONARY ARTERIAL HYPERTENSION
  3. COZAAR [Concomitant]
  4. PLAVIX [Concomitant]
  5. LASIX [Concomitant]
  6. LIPITOR [Concomitant]
  7. ASPIRIN [Concomitant]
  8. ASTELIN [Concomitant]
  9. POTASSIUM CHLORIDE [Concomitant]
  10. AMARYL [Concomitant]
  11. ALLOPURINOL [Concomitant]
  12. CENTRUM SILVER [Concomitant]

REACTIONS (1)
  - Nasal congestion [Unknown]
